FAERS Safety Report 6214847-2 (Version None)
Quarter: 2009Q2

REPORT INFORMATION
  Report Type: 
  Country: None (occurrence: None)
  Receive Date: 20090604
  Receipt Date: 20090601
  Transmission Date: 20091009
  Serious: Yes (Other)
  Sender: FDA-Public Use
  Company Number: BR-ROCHE-635657

PATIENT
  Age: 12 Year
  Sex: Female

DRUGS (13)
  1. MYCOPHENOLATE MOFETIL [Suspect]
     Route: 065
  2. MYCOPHENOLATE MOFETIL [Suspect]
     Route: 065
  3. RITUXIMAB [Suspect]
     Route: 065
  4. RITUXIMAB [Suspect]
     Route: 065
  5. RITUXIMAB [Suspect]
     Route: 065
  6. METHYLPREDNISOLONE [Suspect]
     Route: 065
  7. PREDNISONE [Suspect]
     Route: 065
  8. PREDNISONE [Suspect]
     Route: 065
  9. TACROLIMUS [Suspect]
     Route: 065
  10. TACROLIMUS [Suspect]
     Route: 065
  11. CYCLOSPORINE [Suspect]
     Route: 065
  12. CYCLOSPORINE [Suspect]
     Route: 065
  13. ACYCLOVIR [Suspect]
     Route: 065

REACTIONS (5)
  - CONVULSION [None]
  - EPSTEIN-BARR VIRUS ASSOCIATED LYMPHOPROLIFERATIVE DISORDER [None]
  - HYPOGAMMAGLOBULINAEMIA [None]
  - LYMPHOPROLIFERATIVE DISORDER [None]
  - UPPER RESPIRATORY TRACT INFECTION [None]
